FAERS Safety Report 16340095 (Version 2)
Quarter: 2019Q2

REPORT INFORMATION
  Report Type: Report from Study
  Country: US (occurrence: US)
  Receive Date: 20190522
  Receipt Date: 20190524
  Transmission Date: 20190711
  Serious: Yes (Hospitalization)
  Sender: FDA-Public Use
  Company Number: US-BIOGEN-2019BI00738954

PATIENT
  Age: 64 Year
  Sex: Female

DRUGS (1)
  1. TYSABRI [Suspect]
     Active Substance: NATALIZUMAB
     Indication: MULTIPLE SCLEROSIS
     Dosage: INFUSED OVER 1 HOUR
     Route: 042
     Dates: start: 20180730

REACTIONS (16)
  - Immune system disorder [Unknown]
  - Device battery issue [Unknown]
  - Blood glucose increased [Recovered/Resolved]
  - Dysstasia [Recovered/Resolved]
  - Depressed mood [Unknown]
  - Cardiac disorder [Unknown]
  - Asthenia [Recovered/Resolved]
  - Fall [Recovered/Resolved]
  - Headache [Recovered/Resolved]
  - Tremor [Recovered/Resolved]
  - Bullous impetigo [Not Recovered/Not Resolved]
  - Chest pain [Recovered/Resolved]
  - Staphylococcal infection [Unknown]
  - Fear [Unknown]
  - Pyrexia [Recovered/Resolved]
  - Contusion [Recovered/Resolved]

NARRATIVE: CASE EVENT DATE: 20190424
